FAERS Safety Report 21347789 (Version 1)
Quarter: 2022Q3

REPORT INFORMATION
  Report Type: Spontaneous
  Country: US (occurrence: US)
  Receive Date: 20220919
  Receipt Date: 20220919
  Transmission Date: 20221026
  Serious: No
  Sender: FDA-Public Use
  Company Number: US-SA-SAC20220914002054

PATIENT
  Sex: Female
  Weight: 88.4 kg

DRUGS (13)
  1. CERDELGA [Suspect]
     Active Substance: ELIGLUSTAT
     Indication: Gaucher^s disease
     Dosage: 84 MG, BID
     Route: 065
     Dates: start: 20150718
  2. ELELYSO [Concomitant]
     Active Substance: TALIGLUCERASE ALFA
  3. CALCIUM\VITAMIN D [Concomitant]
     Active Substance: CALCIUM\VITAMIN D
  4. ZINC [Concomitant]
     Active Substance: ZINC
  5. CO ENZYM Q10 [Concomitant]
  6. VITAMINS [Concomitant]
     Active Substance: VITAMINS
  7. HERBALS [Concomitant]
     Active Substance: HERBALS
  8. VITAMIN D NOS [Concomitant]
     Active Substance: VITAMIN D NOS
  9. VITAMIN C [Concomitant]
     Active Substance: ASCORBIC ACID
  10. SULFAMETHOXAZOLE [Concomitant]
     Active Substance: SULFAMETHOXAZOLE
  11. PENICILLIN VK COX [Concomitant]
     Dosage: 250 MG
  12. CODEINE PHOSPHATE [Concomitant]
     Active Substance: CODEINE PHOSPHATE
  13. AZITHROMYCIN [Concomitant]
     Active Substance: AZITHROMYCIN

REACTIONS (2)
  - Palpitations [Unknown]
  - Dizziness [Unknown]
